FAERS Safety Report 22925259 (Version 2)
Quarter: 2023Q4

REPORT INFORMATION
  Report Type: Spontaneous
  Country: FR (occurrence: FR)
  Receive Date: 20230908
  Receipt Date: 20231208
  Transmission Date: 20240110
  Serious: Yes (Other)
  Sender: FDA-Public Use
  Company Number: FR-BRISTOL-MYERS SQUIBB COMPANY-2023-127286

PATIENT
  Sex: Female

DRUGS (2)
  1. REBLOZYL [Suspect]
     Active Substance: LUSPATERCEPT-AAMT
     Indication: Anaemia of malignant disease
     Dosage: DOSE : 1 MG/KG THEN 1.33 MG/KG;     FREQ : UNAVAILABLE ; UNAVAILABLE
  2. REBLOZYL [Suspect]
     Active Substance: LUSPATERCEPT-AAMT
     Dosage: DOSE : 1 MG/KG THEN 1.33 MG/KG;     FREQ : UNAVAILABLE ; UNAVAILABLE

REACTIONS (1)
  - Pulmonary embolism [Unknown]
